FAERS Safety Report 17048981 (Version 1)
Quarter: 2019Q4

REPORT INFORMATION
  Report Type: Spontaneous
  Country: US (occurrence: US)
  Receive Date: 20191118
  Receipt Date: 20191118
  Transmission Date: 20200122
  Serious: No
  Sender: FDA-Public Use
  Company Number: None

PATIENT
  Age: 7 Month
  Sex: Female

DRUGS (1)
  1. CLONAZEPAN 1 MG [Suspect]
     Active Substance: CLONAZEPAM
     Indication: PANIC ATTACK
     Dosage: ?          QUANTITY:90 TABLET(S);?
     Route: 048
     Dates: start: 20191029, end: 20191115

REACTIONS (5)
  - Blindness [None]
  - Balance disorder [None]
  - Asthenia [None]
  - Fall [None]
  - Insomnia [None]

NARRATIVE: CASE EVENT DATE: 20191030
